APPROVED DRUG PRODUCT: NAFTIN
Active Ingredient: NAFTIFINE HYDROCHLORIDE
Strength: 1%
Dosage Form/Route: GEL;TOPICAL
Application: N019356 | Product #001 | TE Code: AB
Applicant: LEGACY PHARMA INC
Approved: Jun 18, 1990 | RLD: Yes | RS: Yes | Type: RX